FAERS Safety Report 21238920 (Version 1)
Quarter: 2022Q3

REPORT INFORMATION
  Report Type: Spontaneous
  Country: IN (occurrence: IN)
  Receive Date: 20220822
  Receipt Date: 20220822
  Transmission Date: 20221027
  Serious: Yes (Death, Other)
  Sender: FDA-Public Use
  Company Number: IN-SA-SAC20220819000508

PATIENT
  Age: 32 Year

DRUGS (1)
  1. FABRAZYME [Suspect]
     Active Substance: AGALSIDASE BETA
     Indication: Fabry^s disease
     Dosage: 1 MG/KG, QOW
     Route: 065
     Dates: start: 2014

REACTIONS (2)
  - Myocardial infarction [Fatal]
  - Disease complication [Fatal]

NARRATIVE: CASE EVENT DATE: 20220814
